FAERS Safety Report 4307716-6 (Version None)
Quarter: 2004Q1

REPORT INFORMATION
  Report Type: 
  Country: None (occurrence: None)
  Receive Date: 20040227
  Receipt Date: 20040227
  Transmission Date: 20041129
  Serious: Yes (Life-Threatening, Hospitalization)
  Sender: FDA-Public Use
  Company Number: None

PATIENT
  Age: 76 Year
  Sex: Male
  Weight: 61.3 kg

DRUGS (5)
  1. DIGOXIN [Suspect]
  2. ATENOLOL [Concomitant]
  3. SIMVASTATIN [Concomitant]
  4. QUININE [Concomitant]
  5. METOLAZONE [Concomitant]

REACTIONS (3)
  - DIARRHOEA [None]
  - NAUSEA [None]
  - VOMITING [None]
